FAERS Safety Report 7888806-8 (Version None)
Quarter: 2011Q4

REPORT INFORMATION
  Report Type: 
  Country: None (occurrence: None)
  Receive Date: 20111103
  Receipt Date: 20111031
  Transmission Date: 20120403
  Serious: Yes (Hospitalization, Disabling, Other)
  Sender: FDA-Public Use
  Company Number: US-PFIZER INC-2011093777

PATIENT
  Sex: Female

DRUGS (2)
  1. CHANTIX [Suspect]
     Indication: SMOKING CESSATION THERAPY
     Dosage: 0.5 MG TABLET DAILY FOR THE FIRST 8 DAYS AND 1 MG TABLET DAILY FOR THE REMAINING 4 DAYS
     Dates: start: 20090319, end: 20090331
  2. COMBIVENT [Concomitant]
     Indication: ASTHMA
     Dosage: UNK
     Dates: start: 20000101

REACTIONS (6)
  - LOSS OF CONSCIOUSNESS [None]
  - BACK PAIN [None]
  - NECK PAIN [None]
  - HEADACHE [None]
  - FALL [None]
  - CERVICAL VERTEBRAL FRACTURE [None]
